FAERS Safety Report 10537476 (Version 1)
Quarter: 2014Q4

REPORT INFORMATION
  Report Type: Spontaneous
  Country: US (occurrence: None)
  Receive Date: 20141021
  Receipt Date: 20141021
  Transmission Date: 20150529
  Serious: Yes (Death, Other)
  Sender: FDA-Public Use
  Company Number: 2014SCAL000201

PATIENT
  Age: 57 Year
  Sex: Male

DRUGS (2)
  1. MOEXIPRIL [Concomitant]
     Active Substance: MOEXIPRIL HYDROCHLORIDE
  2. HYDROCHLOROTHIAZIDE. [Suspect]
     Active Substance: HYDROCHLOROTHIAZIDE
     Indication: HYPERTENSION

REACTIONS (7)
  - Neutropenia [None]
  - Blood creatine abnormal [None]
  - Neutropenic colitis [None]
  - Hyperhidrosis [None]
  - Multi-organ failure [None]
  - Septic shock [None]
  - Areflexia [None]
